FAERS Safety Report 4702333-8 (Version None)
Quarter: 2005Q2

REPORT INFORMATION
  Report Type: 
  Country: None (occurrence: None)
  Receive Date: 20050113
  Receipt Date: 20050113
  Transmission Date: 20051028
  Serious: Yes (Other)
  Sender: FDA-Public Use
  Company Number: None

PATIENT
  Sex: Female
  Weight: 77.5651 kg

DRUGS (4)
  1. CARBATROL [Suspect]
     Indication: CONVULSION
     Dosage: 300 MG CAPS 2 PO BID
     Route: 048
  2. NOGUS NERVE STIMULATOR [Concomitant]
  3. NEURONTIN [Concomitant]
  4. GABITRIL [Concomitant]

REACTIONS (2)
  - CONDITION AGGRAVATED [None]
  - GRAND MAL CONVULSION [None]
